FAERS Safety Report 8901329 (Version 2)
Quarter: 2013Q1

REPORT INFORMATION
  Report Type: Spontaneous
  Country: CA (occurrence: CA)
  Receive Date: 20121109
  Receipt Date: 20130116
  Transmission Date: 20140127
  Serious: Yes (Life-Threatening, Hospitalization, Other)
  Sender: FDA-Public Use
  Company Number: CA-SHIRE-ALL1-2012-05358

PATIENT
  Age: 22 None
  Sex: Female
  Weight: 54.42 kg

DRUGS (6)
  1. VYVANSE [Suspect]
     Indication: PRODUCT USED FOR UNKNOWN INDICATION
     Dosage: 50 MG, 1X/DAY:QD
     Route: 048
     Dates: start: 20121016, end: 20121021
  2. VYVANSE [Suspect]
     Dosage: 50 MG, 1X/DAY:QD
     Route: 048
     Dates: start: 201210, end: 201210
  3. VYVANSE [Suspect]
     Dosage: 20 MG, 1X/DAY:QD
     Route: 048
     Dates: start: 20120906, end: 20120911
  4. VYVANSE [Suspect]
     Dosage: 30 MG, 1X/DAY:QD
     Route: 048
     Dates: start: 20120912, end: 20120918
  5. VYVANSE [Suspect]
     Dosage: 40 MG, 1X/DAY:QD
     Route: 048
     Dates: start: 20120919, end: 20121015
  6. EPIPEN [Concomitant]
     Indication: FOOD ALLERGY
     Dosage: 0.3 MG, AS REQ^D
     Route: 030

REACTIONS (4)
  - Pharyngeal oedema [Recovered/Resolved]
  - Allergic respiratory symptom [Recovered/Resolved]
  - Wheezing [Recovered/Resolved]
  - Urticaria [Recovered/Resolved]
